FAERS Safety Report 6296613-5 (Version None)
Quarter: 2009Q3

REPORT INFORMATION
  Report Type: 
  Country: None (occurrence: None)
  Receive Date: 20090804
  Receipt Date: 20090731
  Transmission Date: 20100115
  Serious: Yes (Other)
  Sender: FDA-Public Use
  Company Number: AT-BRISTOL-MYERS SQUIBB COMPANY-14680573

PATIENT
  Age: 21 Year
  Sex: Female
  Weight: 40 kg

DRUGS (2)
  1. ABILIFY [Suspect]
     Indication: PSYCHOTIC DISORDER
     Route: 048
     Dates: start: 20090620, end: 20090626
  2. ZYPREXA [Suspect]
     Dosage: INITIATED WITH 5MG/D SINCE AUG2007; DOSE REDUCED TO 2.5 MG/DAY IN NOV08 AND CONTINUED
     Route: 048
     Dates: start: 20070801

REACTIONS (2)
  - BUNDLE BRANCH BLOCK RIGHT [None]
  - VENTRICULAR TACHYCARDIA [None]
